FAERS Safety Report 24817915 (Version 1)
Quarter: 2025Q1

REPORT INFORMATION
  Report Type: Report from Study
  Country: TH (occurrence: TH)
  Receive Date: 20250108
  Receipt Date: 20250108
  Transmission Date: 20250408
  Serious: Yes (Death, Other)
  Sender: ALEXION PHARMACEUTICALS
  Company Number: TH-AstraZeneca-CH-00775706A

PATIENT

DRUGS (8)
  1. LYNPARZA [Suspect]
     Active Substance: OLAPARIB
     Indication: Adenocarcinoma pancreas
     Dosage: 300 MILLIGRAM, BID
     Route: 048
  2. LYNPARZA [Suspect]
     Active Substance: OLAPARIB
     Dosage: 300 MILLIGRAM, BID
  3. LYNPARZA [Suspect]
     Active Substance: OLAPARIB
     Dosage: 300 MILLIGRAM, BID
     Route: 048
  4. LYNPARZA [Suspect]
     Active Substance: OLAPARIB
     Dosage: 300 MILLIGRAM, BID
  5. LYNPARZA [Suspect]
     Active Substance: OLAPARIB
     Dosage: 450 MILLIGRAM, QD
     Route: 048
  6. LYNPARZA [Suspect]
     Active Substance: OLAPARIB
     Dosage: 450 MILLIGRAM, QD
  7. LYNPARZA [Suspect]
     Active Substance: OLAPARIB
     Dosage: 450 MILLIGRAM, QD
     Route: 048
  8. LYNPARZA [Suspect]
     Active Substance: OLAPARIB
     Dosage: 450 MILLIGRAM, QD

REACTIONS (2)
  - Acute kidney injury [Fatal]
  - Metastases to peritoneum [Fatal]
